FAERS Safety Report 9962806 (Version 1)
Quarter: 2014Q1

REPORT INFORMATION
  Report Type: Report from Study
  Country: US (occurrence: US)
  Receive Date: 20140305
  Receipt Date: 20140305
  Transmission Date: 20141002
  Serious: No
  Sender: FDA-Public Use
  Company Number: US-ABBVIE-13P-163-1114424-00

PATIENT
  Age: 43 Year
  Sex: Male

DRUGS (15)
  1. HUMIRA [Suspect]
     Indication: PSORIATIC ARTHROPATHY
     Route: 058
     Dates: start: 20130605
  2. ASACOL HD [Suspect]
     Indication: COLITIS ULCERATIVE
  3. ASACOL HD [Suspect]
     Indication: IRRITABLE BOWEL SYNDROME
  4. ASACOL HD [Suspect]
     Indication: CROHN^S DISEASE
  5. DICYCLOMINE [Concomitant]
     Indication: GASTRITIS
  6. CENTRUM SILVER [Concomitant]
     Indication: PRODUCT USED FOR UNKNOWN INDICATION
  7. TYLENOL WITH CODEINE NO.4 [Concomitant]
     Indication: PAIN
  8. PREDNISONE [Concomitant]
     Indication: PRODUCT USED FOR UNKNOWN INDICATION
  9. OMEPRAZOLE [Concomitant]
     Indication: GASTROOESOPHAGEAL REFLUX DISEASE
  10. TOPAMAX [Concomitant]
     Indication: PAIN
  11. VITAMIN D [Concomitant]
     Indication: PRODUCT USED FOR UNKNOWN INDICATION
  12. TRAZODONE [Concomitant]
     Indication: ABNORMAL DREAMS
  13. LISINOPRIL [Concomitant]
     Indication: HYPERTENSION
  14. ANDROGEL [Concomitant]
     Indication: PRODUCT USED FOR UNKNOWN INDICATION
  15. CLARITIN D REDITABS [Concomitant]
     Indication: HYPERSENSITIVITY

REACTIONS (5)
  - Feeling abnormal [Not Recovered/Not Resolved]
  - Arthritis [Not Recovered/Not Resolved]
  - Muscle spasms [Not Recovered/Not Resolved]
  - Pain in extremity [Not Recovered/Not Resolved]
  - Injection site pain [Not Recovered/Not Resolved]
